FAERS Safety Report 5262344-3 (Version None)
Quarter: 2007Q1

REPORT INFORMATION
  Report Type: 
  Country: None (occurrence: None)
  Receive Date: 20061208
  Receipt Date: 20060824
  Transmission Date: 20070707
  Serious: Yes (Other)
  Sender: FDA-Public Use
  Company Number: USA-2006-0025081

PATIENT
  Age: 16 Year

DRUGS (1)
  1. OXYCODONE HCL [Suspect]
     Indication: DRUG ABUSER

REACTIONS (2)
  - DRUG ABUSER [None]
  - OVERDOSE [None]
